FAERS Safety Report 16707444 (Version 1)
Quarter: 2019Q3

REPORT INFORMATION
  Report Type: Spontaneous
  Country: DE (occurrence: DE)
  Receive Date: 20190815
  Receipt Date: 20190815
  Transmission Date: 20191004
  Serious: Yes (Other)
  Sender: FDA-Public Use
  Company Number: DE-ALLERGAN-1933547US

PATIENT
  Sex: Female

DRUGS (1)
  1. EFLORNITHINE HCL - BP [Suspect]
     Active Substance: EFLORNITHINE HYDROCHLORIDE
     Indication: HIRSUTISM
     Dosage: UNK
     Route: 065

REACTIONS (1)
  - Epilepsy [Unknown]
